FAERS Safety Report 9243700 (Version 1)
Quarter: 2013Q1

REPORT INFORMATION
  Report Type: Spontaneous
  Country: US (occurrence: None)
  Receive Date: 20121123
  Receipt Date: 20121123
  Transmission Date: 20140127
  Serious: No
  Sender: FDA-Public Use
  Company Number: 358464

PATIENT
  Sex: Male

DRUGS (3)
  1. LEVEMIR [Suspect]
     Indication: DIABETES MELLITUS
     Route: 058
  2. VICTOZA [Suspect]
     Indication: TYPE 2 DIABETES MELLITUS
     Route: 058
  3. NOVOLOG (INSULIN ASPART) SOLUTION FOR INJECTION, 100 U/ML [Concomitant]

REACTIONS (3)
  - Decreased appetite [None]
  - Blood glucose increased [None]
  - Blood glucose decreased [None]
